FAERS Safety Report 4417354-2 (Version None)
Quarter: 2004Q2

REPORT INFORMATION
  Report Type: 
  Country: None (occurrence: None)
  Receive Date: 20040629
  Receipt Date: 20031107
  Transmission Date: 20050107
  Serious: Yes (Hospitalization)
  Sender: FDA-Public Use
  Company Number: US_001051480

PATIENT
  Age: 80 Year
  Sex: Male
  Weight: 70 kg

DRUGS (3)
  1. HUMALOG [Suspect]
     Indication: DIABETES MELLITUS
     Dosage: 30 U/DAY
     Dates: start: 20001002
  2. ACTOS [Concomitant]
  3. DILANTIN [Concomitant]

REACTIONS (3)
  - ARTHRALGIA [None]
  - BLOOD GLUCOSE INCREASED [None]
  - JOINT SWELLING [None]
